FAERS Safety Report 19385189 (Version 3)
Quarter: 2023Q2

REPORT INFORMATION
  Report Type: Report from Study
  Country: CN (occurrence: None)
  Receive Date: 20210607
  Receipt Date: 20230414
  Transmission Date: 20230722
  Serious: Yes (Hospitalization)
  Sender: FDA-Public Use
  Company Number: CN-MERCK HEALTHCARE KGAA-9241653

PATIENT
  Age: 30 Year
  Sex: Female
  Weight: 50 kg

DRUGS (4)
  1. GONAL-F [Suspect]
     Active Substance: FOLLITROPIN
     Indication: Controlled ovarian stimulation
     Dosage: IH (AS REPORTED)
     Dates: start: 20200720, end: 2020
  2. GONAL-F [Suspect]
     Active Substance: FOLLITROPIN
     Dosage: IH (AS REPORTED)
     Dates: start: 2020, end: 20200728
  3. CETROTIDE [Suspect]
     Active Substance: CETRORELIX ACETATE
     Indication: Controlled ovarian stimulation
     Dosage: IH (AS REPORTED)
     Dates: start: 20200724, end: 20200728
  4. DECAPEPTYL (ACETATE) [Suspect]
     Active Substance: TRIPTORELIN ACETATE
     Indication: Controlled ovarian stimulation
     Dosage: IH (AS REPORTED)
     Dates: start: 20200729, end: 20200729

REACTIONS (2)
  - Abnormal uterine bleeding [Recovered/Resolved]
  - Uterine polyp [Recovered/Resolved]

NARRATIVE: CASE EVENT DATE: 20200821
